FAERS Safety Report 8394591-6 (Version None)
Quarter: 2012Q2

REPORT INFORMATION
  Report Type: 
  Country: None (occurrence: None)
  Receive Date: 20120530
  Receipt Date: 20120525
  Transmission Date: 20120825
  Serious: Yes (Hospitalization)
  Sender: FDA-Public Use
  Company Number: SG-SANOFI-AVENTIS-2012SA036992

PATIENT
  Age: 47 Year
  Sex: Female

DRUGS (2)
  1. ARAVA [Suspect]
     Route: 048
  2. ARAVA [Suspect]
     Route: 048

REACTIONS (2)
  - INFECTION [None]
  - ARTHRITIS BACTERIAL [None]
